FAERS Safety Report 7328104-4 (Version None)
Quarter: 2011Q1

REPORT INFORMATION
  Report Type: 
  Country: None (occurrence: None)
  Receive Date: 20110303
  Receipt Date: 20110203
  Transmission Date: 20110831
  Serious: No
  Sender: FDA-Public Use
  Company Number: US-B.I. PHARMACEUTICALS,INC./RIDGEFIELD-2011-BP-03388BP

PATIENT
  Age: 81 Year
  Sex: Female

DRUGS (8)
  1. PRADAXA [Suspect]
     Indication: CEREBROVASCULAR ACCIDENT PROPHYLAXIS
     Dosage: 150 MG
     Route: 048
     Dates: start: 20110203, end: 20110203
  2. LISINOPRIL [Concomitant]
  3. AVELOX [Concomitant]
  4. SYNTHROID [Concomitant]
  5. LASIX [Concomitant]
  6. POTASSIUM [Concomitant]
  7. PRADAXA [Suspect]
     Dosage: 300 MG
     Dates: start: 20110204
  8. PRADAXA [Suspect]
     Indication: ATRIAL FIBRILLATION
     Dosage: 300 MG
     Route: 048
     Dates: start: 20110129, end: 20110202

REACTIONS (3)
  - GINGIVAL PAIN [None]
  - CHEST DISCOMFORT [None]
  - GINGIVAL BLEEDING [None]
